FAERS Safety Report 10235707 (Version 3)
Quarter: 2014Q3

REPORT INFORMATION
  Report Type: Spontaneous
  Country: JP (occurrence: None)
  Receive Date: 20140611
  Receipt Date: 20140729
  Transmission Date: 20150326
  Serious: Yes (Hospitalization)
  Sender: FDA-Public Use
  Company Number: AE-SPE-2014-019

PATIENT
  Age: 4 Year
  Sex: Female

DRUGS (3)
  1. MEIACT MS FINE GRANULES (CEFDITOREN PIVOXIL) [Suspect]
     Active Substance: CEFDITOREN PIVOXIL
     Indication: UPPER RESPIRATORY TRACT INFLAMMATION
     Route: 048
     Dates: start: 20101213, end: 20101216
  2. I-CARBOCISTEINE [Concomitant]
  3. OXATOMIDE [Concomitant]
     Active Substance: OXATOMIDE

REACTIONS (7)
  - Norovirus test positive [None]
  - Abdominal pain [None]
  - Clostridium difficile infection [None]
  - Enterocolitis bacterial [None]
  - Pyrexia [None]
  - Vomiting [None]
  - Diarrhoea [None]

NARRATIVE: CASE EVENT DATE: 20101227
